FAERS Safety Report 15298079 (Version 2)
Quarter: 2021Q3

REPORT INFORMATION
  Report Type: Spontaneous
  Country: IT (occurrence: IT)
  Receive Date: 20180820
  Receipt Date: 20210921
  Transmission Date: 20211014
  Serious: Yes (Other)
  Sender: FDA-Public Use
  Company Number: IT-ELI_LILLY_AND_COMPANY-IT201808007867

PATIENT
  Age: 78 Year
  Sex: Female

DRUGS (7)
  1. ZARELIS [Concomitant]
     Active Substance: VENLAFAXINE HYDROCHLORIDE
     Dosage: 37.5 MG, UNK
  2. HUMALOG [Suspect]
     Active Substance: INSULIN LISPRO
     Indication: DIABETES MELLITUS
     Dosage: 25 IU, DAILY
     Route: 058
     Dates: start: 20180101, end: 20180704
  3. DILATREND [Concomitant]
     Active Substance: CARVEDILOL
     Dosage: 6.25 MG, UNK
  4. VYTORIN [Concomitant]
     Active Substance: EZETIMIBE\SIMVASTATIN
     Dosage: 1 DF, UNK
  5. ZESTRIL [Concomitant]
     Active Substance: LISINOPRIL
     Dosage: 1 DF, UNK
  6. TIROSINT [Concomitant]
     Active Substance: LEVOTHYROXINE SODIUM
     Dosage: UNK
  7. TRESIBA [Suspect]
     Active Substance: INSULIN DEGLUDEC
     Indication: DIABETES MELLITUS
     Dosage: 6 IU, DAILY
     Route: 058
     Dates: start: 20180101, end: 20180704

REACTIONS (2)
  - Hypoglycaemia [Recovering/Resolving]
  - Hyperhidrosis [Recovering/Resolving]

NARRATIVE: CASE EVENT DATE: 20180704
